FAERS Safety Report 8660209 (Version 4)
Quarter: 2013Q4

REPORT INFORMATION
  Report Type: Spontaneous
  Country: US (occurrence: US)
  Receive Date: 20120711
  Receipt Date: 20131025
  Transmission Date: 20140711
  Serious: Yes (Hospitalization, Other)
  Sender: FDA-Public Use
  Company Number: US-ASTRAZENECA-2012SE45115

PATIENT
  Age: 78 Year
  Sex: Female
  Weight: 81.6 kg

DRUGS (18)
  1. NEXIUM [Suspect]
     Indication: GASTROOESOPHAGEAL REFLUX DISEASE
     Route: 048
  2. PRILOSEC [Suspect]
     Indication: GASTROOESOPHAGEAL REFLUX DISEASE
     Dosage: DAILY
     Route: 048
  3. BRILINTA [Suspect]
     Indication: STENT PLACEMENT
     Route: 048
     Dates: start: 2013, end: 2013
  4. PLAVIX [Concomitant]
     Indication: ANTICOAGULANT THERAPY
     Route: 048
     Dates: start: 2002
  5. VIOXX [Concomitant]
  6. IMDUR [Concomitant]
     Indication: CARDIAC DISORDER
     Route: 048
     Dates: start: 2002
  7. NORVASC [Concomitant]
     Indication: BLOOD PRESSURE ABNORMAL
     Route: 048
     Dates: start: 2002
  8. ATENOLOL [Concomitant]
     Indication: BLOOD PRESSURE ABNORMAL
     Route: 048
     Dates: start: 2002
  9. SYNTHROID [Concomitant]
     Indication: THYROID DISORDER
     Route: 048
  10. GLUCOPHAGE [Concomitant]
     Indication: DIABETES MELLITUS
     Route: 048
     Dates: start: 2008
  11. LANTUS INSULIN [Concomitant]
     Indication: DIABETES MELLITUS
     Route: 058
     Dates: start: 2008
  12. NORCO [Concomitant]
     Indication: BACK PAIN
     Dates: start: 2006
  13. EFFIENT [Concomitant]
     Indication: STENT PLACEMENT
     Route: 048
     Dates: start: 2013
  14. LIPITOR [Concomitant]
     Route: 048
     Dates: start: 2013
  15. LOSARTAN [Concomitant]
     Indication: BLOOD PRESSURE ABNORMAL
     Route: 048
     Dates: start: 2013
  16. INSULIN [Concomitant]
     Indication: DIABETES MELLITUS
     Dosage: 2-8 UNITS SLIDING SC
     Route: 058
  17. THYROID ARMOUR [Concomitant]
     Indication: THYROID DISORDER
     Route: 048
  18. ASPIRIN [Concomitant]

REACTIONS (31)
  - Haemorrhage [Unknown]
  - Hip fracture [Unknown]
  - Gallbladder disorder [Unknown]
  - Cholelithiasis [Unknown]
  - Full blood count decreased [Unknown]
  - Staphylococcal infection [Unknown]
  - Coronary artery occlusion [Unknown]
  - Aphagia [Unknown]
  - Diabetes mellitus [Unknown]
  - Diverticulitis [Unknown]
  - Memory impairment [Unknown]
  - Fall [Unknown]
  - Haemorrhoids [Unknown]
  - Sinusitis [Unknown]
  - Oropharyngeal pain [Unknown]
  - Mental impairment [Unknown]
  - Balance disorder [Unknown]
  - Gastrooesophageal reflux disease [Unknown]
  - Thyroid disorder [Unknown]
  - Musculoskeletal discomfort [Unknown]
  - Dyspepsia [Unknown]
  - Musculoskeletal discomfort [Unknown]
  - Dyspepsia [Unknown]
  - Dyspnoea [Recovered/Resolved]
  - Polycythaemia [Unknown]
  - Dizziness [Unknown]
  - Headache [Unknown]
  - Alopecia [Unknown]
  - Drug dose omission [Unknown]
  - Drug ineffective [Unknown]
  - Intentional drug misuse [Unknown]
